FAERS Safety Report 7258116-0 (Version None)
Quarter: 2011Q1

REPORT INFORMATION
  Report Type: 
  Country: None (occurrence: None)
  Receive Date: 20110129
  Receipt Date: 20100725
  Transmission Date: 20110831
  Serious: No
  Sender: FDA-Public Use
  Company Number: US-ABBOTT-10P-163-0659779-00

PATIENT
  Age: 40 Year
  Sex: Female

DRUGS (2)
  1. HUMIRA [Suspect]
     Indication: CROHN'S DISEASE
     Dates: start: 20100713
  2. PROZAC [Concomitant]
     Indication: DEPRESSION

REACTIONS (3)
  - COUGH [None]
  - OROPHARYNGEAL PAIN [None]
  - INJECTION SITE PAIN [None]
